FAERS Safety Report 21147415 (Version 2)
Quarter: 2022Q3

REPORT INFORMATION
  Report Type: Spontaneous
  Country: US (occurrence: US)
  Receive Date: 20220729
  Receipt Date: 20220921
  Transmission Date: 20221027
  Serious: No
  Sender: FDA-Public Use
  Company Number: US-PFIZER INC-202200966940

PATIENT
  Age: 37 Year
  Sex: Male
  Weight: 108.86 kg

DRUGS (1)
  1. GENOTROPIN [Suspect]
     Active Substance: SOMATROPIN
     Indication: Growth disorder
     Dosage: ONCE A DAY EVERY DAY FOR THE NEXT 2 OR 3 YEARS
     Dates: start: 20220706, end: 2022

REACTIONS (5)
  - Accidental exposure to product [Unknown]
  - Exposure via skin contact [Unknown]
  - Wrong technique in device usage process [Unknown]
  - Device breakage [Unknown]
  - Mental disorder [Unknown]

NARRATIVE: CASE EVENT DATE: 20220101
